FAERS Safety Report 14773450 (Version 14)
Quarter: 2018Q3

REPORT INFORMATION
  Report Type: Spontaneous
  Country: ES (occurrence: ES)
  Receive Date: 20180418
  Receipt Date: 20180823
  Transmission Date: 20181010
  Serious: Yes (Life-Threatening, Hospitalization)
  Sender: FDA-Public Use
  Company Number: PHHY2018ES067315

PATIENT
  Age: 64 Year
  Sex: Male

DRUGS (10)
  1. DIAZEPAM. [Interacting]
     Active Substance: DIAZEPAM
     Indication: MUSCULOSKELETAL PAIN
     Dosage: 10 MG, QD
     Route: 048
     Dates: start: 20180309, end: 20180311
  2. ENANTYUM [Interacting]
     Active Substance: DEXKETOPROFEN TROMETAMOL
     Indication: MUSCULOSKELETAL PAIN
     Dosage: 25 MG, Q8H
     Route: 048
     Dates: start: 20180310, end: 20180311
  3. TREVICTA [Suspect]
     Active Substance: PALIPERIDONE PALMITATE
     Indication: SCHIZOPHRENIA
     Dosage: 1050 MG, 84 DAY
     Route: 030
     Dates: start: 20170227, end: 20180212
  4. ARKETIN [Interacting]
     Active Substance: RISPERIDONE
     Indication: SCHIZOPHRENIA
     Dosage: 6 MG, QD
     Route: 048
     Dates: start: 20160615, end: 20180311
  5. NAPROXEN. [Interacting]
     Active Substance: NAPROXEN
     Indication: MUSCULOSKELETAL PAIN
     Dosage: 550 MG, Q8H
     Route: 048
     Dates: start: 20180306
  6. DICLOFENAC [Suspect]
     Active Substance: DICLOFENAC
     Indication: MUSCULOSKELETAL PAIN
     Dosage: 50 MG, Q8H
     Route: 048
     Dates: start: 20180409
  7. IBUPROFENO [Interacting]
     Active Substance: IBUPROFEN
     Indication: MUSCULOSKELETAL PAIN
     Dosage: 600 MG, Q8H
     Route: 048
     Dates: start: 20180228
  8. AKINETON [Concomitant]
     Active Substance: BIPERIDEN HYDROCHLORIDE
     Indication: SCHIZOPHRENIA
     Dosage: 4 MG, QD
     Route: 048
     Dates: start: 20160615, end: 20180311
  9. PAROXETINE. [Interacting]
     Active Substance: PAROXETINE
     Indication: SCHIZOPHRENIA
     Dosage: 20 MG, QD
     Route: 048
     Dates: start: 20160615, end: 20180311
  10. QUETIAPINA [Interacting]
     Active Substance: QUETIAPINE
     Indication: SCHIZOPHRENIA
     Dosage: 700 MG, QD
     Route: 048
     Dates: start: 20160615, end: 20180311

REACTIONS (5)
  - Hyperkalaemia [Recovered/Resolved]
  - Renal tubular necrosis [Recovered/Resolved]
  - Depressed level of consciousness [Recovered/Resolved]
  - Drug interaction [Unknown]
  - Coma [Recovered/Resolved]

NARRATIVE: CASE EVENT DATE: 20180311
